FAERS Safety Report 10036118 (Version 1)
Quarter: 2014Q1

REPORT INFORMATION
  Report Type: Spontaneous
  Country: BR (occurrence: BR)
  Receive Date: 20140325
  Receipt Date: 20140325
  Transmission Date: 20141002
  Serious: Yes (Hospitalization, Other)
  Sender: FDA-Public Use
  Company Number: BR-009507513-1403BRA011451

PATIENT
  Age: 0 Day
  Sex: Male
  Weight: 1.9 kg

DRUGS (1)
  1. MERCILON CONTI [Suspect]
     Indication: CONTRACEPTION
     Dosage: 1 DF, QD
     Route: 064
     Dates: end: 2006

REACTIONS (6)
  - Premature baby [Recovered/Resolved]
  - Anal abscess [Recovered/Resolved]
  - Abscess drainage [Recovered/Resolved]
  - Anal abscess [Recovering/Resolving]
  - Low birth weight baby [Unknown]
  - Foetal exposure during pregnancy [Unknown]
